FAERS Safety Report 6693456-5 (Version None)
Quarter: 2010Q2

REPORT INFORMATION
  Report Type: 
  Country: None (occurrence: None)
  Receive Date: 20100423
  Receipt Date: 20100415
  Transmission Date: 20101027
  Serious: Yes (Other)
  Sender: FDA-Public Use
  Company Number: US-BIOGENIDEC-2010BI001146

PATIENT
  Age: 49 Year
  Sex: Female

DRUGS (4)
  1. AVONEX [Suspect]
     Indication: MULTIPLE SCLEROSIS
     Route: 030
     Dates: start: 20091021
  2. MOTRIN [Concomitant]
     Indication: PAIN
  3. VICODIN [Concomitant]
     Indication: PAIN
     Route: 048
  4. VICODIN [Concomitant]

REACTIONS (2)
  - LIPOMA [None]
  - OSTEOARTHRITIS [None]
